FAERS Safety Report 12542169 (Version 3)
Quarter: 2016Q3

REPORT INFORMATION
  Report Type: Spontaneous
  Country: US (occurrence: US)
  Receive Date: 20160708
  Receipt Date: 20160722
  Transmission Date: 20161109
  Serious: Yes (Hospitalization, Other)
  Sender: FDA-Public Use
  Company Number: US-PFIZER INC-2016327971

PATIENT
  Age: 16 Year
  Sex: Male

DRUGS (2)
  1. DEXTROMETHORPHAN HBR [Suspect]
     Active Substance: DEXTROMETHORPHAN HYDROBROMIDE
     Dosage: 600 MG, WEEKLY
  2. DEXTROMETHORPHAN HBR [Suspect]
     Active Substance: DEXTROMETHORPHAN HYDROBROMIDE
     Indication: DRUG ABUSE
     Dosage: 300 MG, UNK
     Route: 048

REACTIONS (4)
  - Drug abuse [Unknown]
  - Unmasking of previously unidentified disease [Recovered/Resolved]
  - Bipolar disorder [Recovered/Resolved]
  - Mania [Unknown]
